FAERS Safety Report 16899145 (Version 1)
Quarter: 2019Q4

REPORT INFORMATION
  Report Type: Spontaneous
  Country: US (occurrence: US)
  Receive Date: 20191009
  Receipt Date: 20191009
  Transmission Date: 20200122
  Serious: Yes (Hospitalization)
  Sender: FDA-Public Use
  Company Number: US-VERTEX PHARMACEUTICALS-2019-009535

PATIENT
  Age: 30 Year
  Sex: Male

DRUGS (18)
  1. URSODIOL. [Concomitant]
     Active Substance: URSODIOL
  2. ALPRAZOLAM. [Concomitant]
     Active Substance: ALPRAZOLAM
  3. PROAIR HFA [Concomitant]
     Active Substance: ALBUTEROL SULFATE
  4. PULMOZYME [Concomitant]
     Active Substance: DORNASE ALFA
  5. TOBRAMYCIN. [Concomitant]
     Active Substance: TOBRAMYCIN
  6. DEKASOFT [Concomitant]
  7. SODIUM CHLORIDE. [Concomitant]
     Active Substance: SODIUM CHLORIDE
  8. ADVAIR HFA [Concomitant]
     Active Substance: FLUTICASONE PROPIONATE\SALMETEROL XINAFOATE
  9. ALBUTEROL [SALBUTAMOL] [Concomitant]
     Active Substance: ALBUTEROL
  10. ALENDRONATE [Concomitant]
     Active Substance: ALENDRONATE SODIUM
  11. POLYMYXIN B;TRIMETHOPRIM [Concomitant]
  12. VITAMIN D2 [Concomitant]
     Active Substance: ERGOCALCIFEROL
  13. MONTELUKAST [Concomitant]
     Active Substance: MONTELUKAST SODIUM
  14. ORKAMBI [Suspect]
     Active Substance: IVACAFTOR\LUMACAFTOR
     Indication: CYSTIC FIBROSIS
     Dosage: (2 DOSAGE FORM) 200/ 125MG TABLETS, BID
     Route: 048
     Dates: start: 20160322, end: 201909
  15. ENSURE [Concomitant]
     Active Substance: AMINO ACIDS\DEXTROSE\ELECTROLYTES NOS\SOYBEAN OIL\VITAMINS
  16. OMEPRAZOLE. [Concomitant]
     Active Substance: OMEPRAZOLE
  17. SCANDISHAKE MIX [Concomitant]
     Active Substance: DIETARY SUPPLEMENT
  18. CREON [Concomitant]
     Active Substance: PANCRELIPASE AMYLASE\PANCRELIPASE LIPASE\PANCRELIPASE PROTEASE

REACTIONS (2)
  - Infective pulmonary exacerbation of cystic fibrosis [Unknown]
  - Weight decreased [Unknown]

NARRATIVE: CASE EVENT DATE: 20190917
